FAERS Safety Report 6779712-0 (Version None)
Quarter: 2010Q2

REPORT INFORMATION
  Report Type: 
  Country: None (occurrence: None)
  Receive Date: 20100618
  Receipt Date: 20100609
  Transmission Date: 20101027
  Serious: Yes (Hospitalization)
  Sender: FDA-Public Use
  Company Number: PHHO2010AU08625

PATIENT
  Sex: Male
  Weight: 75 kg

DRUGS (7)
  1. DIOVAN T30230+ [Suspect]
     Indication: HYPERTENSION
     Dosage: 80 MG
     Route: 048
     Dates: start: 20100429
  2. CO-DIOVAN T32564+ [Suspect]
     Indication: HYPERTENSION
     Dosage: 80/12.5 MG
     Route: 048
     Dates: start: 20100528
  3. VALIUM [Suspect]
     Indication: SLEEP DISORDER
     Dosage: 5 MG, PRN
     Dates: start: 20100525, end: 20100603
  4. DITROPAN [Concomitant]
     Indication: BLADDER DISORDER
  5. LEVOTHYROXINE SODIUM [Concomitant]
     Indication: THYROID DISORDER
  6. FENAC [Concomitant]
     Indication: ANTIINFLAMMATORY THERAPY
  7. TEMAZE [Concomitant]
     Indication: SLEEP DISORDER

REACTIONS (3)
  - INTENTIONAL DRUG MISUSE [None]
  - SPEECH DISORDER [None]
  - TRANSIENT ISCHAEMIC ATTACK [None]
